FAERS Safety Report 23838549 (Version 1)
Quarter: 2024Q2

REPORT INFORMATION
  Report Type: Spontaneous
  Country: CN (occurrence: CN)
  Receive Date: 20240509
  Receipt Date: 20240509
  Transmission Date: 20240716
  Serious: Yes (Life-Threatening)
  Sender: FDA-Public Use
  Company Number: CN-ALCON LABORATORIES-ALC2024CN002385

PATIENT
  Age: 72 Year
  Sex: Female
  Weight: 60 kg

DRUGS (2)
  1. FLUORESCITE [Suspect]
     Active Substance: FLUORESCEIN SODIUM
     Indication: Angiogram retina
     Dosage: 4 ML, ONCE/SINGLE
     Route: 042
     Dates: start: 20240424, end: 20240424
  2. INDOCYANINE GREEN [Suspect]
     Active Substance: INDOCYANINE GREEN
     Indication: Fluorescence angiogram
     Dosage: 25 MG, ONCE/SINGLE
     Route: 042
     Dates: start: 20240424, end: 20240424

REACTIONS (3)
  - Sneezing [Recovered/Resolved]
  - Pruritus [Recovered/Resolved]
  - Laryngeal oedema [Recovered/Resolved]

NARRATIVE: CASE EVENT DATE: 20240424
